FAERS Safety Report 22361504 (Version 1)
Quarter: 2023Q2

REPORT INFORMATION
  Report Type: Spontaneous
  Country: US (occurrence: None)
  Receive Date: 20230524
  Receipt Date: 20230524
  Transmission Date: 20230722
  Serious: Yes (Hospitalization)
  Sender: FDA-Public Use
  Company Number: None

PATIENT
  Sex: Female

DRUGS (9)
  1. TACROLIMUS [Suspect]
     Active Substance: TACROLIMUS
     Dosage: FREQUENCY : DAILY;?
     Route: 048
  2. MYCOPHENOLIC ACID [Suspect]
     Active Substance: MYCOPHENOLIC ACID
     Dosage: FREQUENCY : DAILY;?
     Route: 048
  3. Bumetanide 2mg [Concomitant]
  4. PANTOPRAZOLE SODIUM [Concomitant]
     Active Substance: PANTOPRAZOLE SODIUM
  5. ASPIRIN [Concomitant]
     Active Substance: ASPIRIN
  6. MIDODRINE [Concomitant]
     Active Substance: MIDODRINE
  7. Acyclovir 200mg [Concomitant]
  8. Sulfamethoxazole-TMP SS 400-800 [Concomitant]
  9. Valganciclovir 450 mg- [Concomitant]

REACTIONS (1)
  - Hospitalisation [None]
